FAERS Safety Report 17792534 (Version 1)
Quarter: 2020Q2

REPORT INFORMATION
  Report Type: Spontaneous
  Country: DE (occurrence: DE)
  Receive Date: 20200515
  Receipt Date: 20200515
  Transmission Date: 20200714
  Serious: Yes (Other)
  Sender: FDA-Public Use
  Company Number: DE-PFIZER INC-2020191568

PATIENT
  Age: 51 Year
  Sex: Male

DRUGS (9)
  1. DEXAMETHASONE. [Concomitant]
     Active Substance: DEXAMETHASONE
     Indication: B-CELL LYMPHOMA
  2. FLUDARABINE [Concomitant]
     Active Substance: FLUDARABINE PHOSPHATE
  3. PREDNISOLONE. [Concomitant]
     Active Substance: PREDNISOLONE
  4. MELPHALAN. [Concomitant]
     Active Substance: MELPHALAN
     Indication: B-CELL LYMPHOMA
  5. SIROLIMUS. [Suspect]
     Active Substance: SIROLIMUS
     Indication: PROPHYLAXIS AGAINST TRANSPLANT REJECTION
     Route: 065
  6. TREOSULFAN [Concomitant]
     Active Substance: TREOSULFAN
  7. DOXORUBICIN [Concomitant]
     Active Substance: DOXORUBICIN
     Indication: B-CELL LYMPHOMA
  8. MYCOPHENOLATE MOFETIL. [Suspect]
     Active Substance: MYCOPHENOLATE MOFETIL
     Indication: PROPHYLAXIS AGAINST TRANSPLANT REJECTION
     Route: 065
  9. BORTEZOMIB. [Concomitant]
     Active Substance: BORTEZOMIB
     Indication: B-CELL LYMPHOMA

REACTIONS (3)
  - Diarrhoea infectious [Recovering/Resolving]
  - Gastroenteritis norovirus [Recovered/Resolved]
  - Ascariasis [Recovered/Resolved]
